FAERS Safety Report 6232927-2 (Version None)
Quarter: 2009Q2

REPORT INFORMATION
  Report Type: 
  Country: None (occurrence: None)
  Receive Date: 20090612
  Receipt Date: 20090612
  Transmission Date: 20091009
  Serious: Yes (Other)
  Sender: FDA-Public Use
  Company Number: None

PATIENT
  Sex: Male

DRUGS (1)
  1. TRILIPIX [Suspect]
     Indication: HYPERCHOLESTEROLAEMIA
     Dosage: 135MG ONCE A DAY PO
     Route: 048
     Dates: start: 20090421, end: 20090428

REACTIONS (1)
  - RASH PRURITIC [None]
